FAERS Safety Report 7980091 (Version 2)
Quarter: 2012Q4

REPORT INFORMATION
  Report Type: 
  Country: CN (occurrence: CN)
  Receive Date: 20110608
  Receipt Date: 20121217
  Transmission Date: 20130627
  Serious: Yes (Hospitalization, Other)
  Sender: FDA-Public Use
  Company Number: CN-SANOFI-AVENTIS-2011SA033583

PATIENT
  Age: 39 Year
  Sex: Male
  Weight: 65 kg

DRUGS (6)
  1. LANTUS [Suspect]
     Indication: DIABETES MELLITUS
     Route: 058
     Dates: start: 20110523, end: 20110525
  2. LANTUS [Suspect]
     Indication: DIABETES MELLITUS
     Route: 058
     Dates: start: 200805, end: 201104
  3. LANTUS [Suspect]
     Indication: DIABETES MELLITUS
     Route: 058
     Dates: start: 201104, end: 20110424
  4. LANTUS [Suspect]
     Indication: DIABETES MELLITUS
     Route: 058
     Dates: start: 20110428, end: 20110522
  5. LANTUS [Suspect]
     Indication: DIABETES MELLITUS
     Route: 058
     Dates: start: 20110526, end: 20110614
  6. INSULIN ASPART [Concomitant]
     Indication: DIABETES MELLITUS
     Dosage: 11IU-5IU-10IU
     Dates: start: 200805

REACTIONS (2)
  - Ketoacidosis [Recovered/Resolved]
  - Product counterfeit [Unknown]
